FAERS Safety Report 16040243 (Version 2)
Quarter: 2019Q2

REPORT INFORMATION
  Report Type: Spontaneous
  Country: DE (occurrence: DE)
  Receive Date: 20190306
  Receipt Date: 20190425
  Transmission Date: 20190711
  Serious: Yes (Other)
  Sender: FDA-Public Use
  Company Number: DE-ASTRAZENECA-2019SE35769

PATIENT
  Age: 70 Year
  Sex: Male
  Weight: 118 kg

DRUGS (2)
  1. FORXIGA [Suspect]
     Active Substance: DAPAGLIFLOZIN
     Dosage: 10.0MG UNKNOWN
     Route: 048
  2. FORXIGA [Suspect]
     Active Substance: DAPAGLIFLOZIN
     Dosage: 5.0MG UNKNOWN
     Route: 048
     Dates: start: 20190224

REACTIONS (5)
  - Pruritus genital [Unknown]
  - Purulent discharge [Unknown]
  - Fungal infection [Recovered/Resolved]
  - Genital swelling [Unknown]
  - Genital erythema [Unknown]

NARRATIVE: CASE EVENT DATE: 20190227
